FAERS Safety Report 5072319-5 (Version None)
Quarter: 2006Q3

REPORT INFORMATION
  Report Type: 
  Country: None (occurrence: None)
  Receive Date: 20060807
  Receipt Date: 20060724
  Transmission Date: 20061208
  Serious: Yes (Hospitalization)
  Sender: FDA-Public Use
  Company Number: JP-JNJFOC-20060704073

PATIENT
  Age: 43 Year
  Sex: Female

DRUGS (1)
  1. ITRAZOLE [Suspect]
     Indication: INFECTION PROPHYLAXIS
     Route: 042

REACTIONS (1)
  - PROTEINURIA [None]
